FAERS Safety Report 8841404 (Version 6)
Quarter: 2012Q4

REPORT INFORMATION
  Report Type: 
  Country: US (occurrence: US)
  Receive Date: 20121015
  Receipt Date: 20121224
  Transmission Date: 20130627
  Serious: Yes (Other)
  Sender: FDA-Public Use
  Company Number: US-009507513-1210USA002119

PATIENT
  Age: 22 Year
  Sex: Female
  Weight: 66.21 kg

DRUGS (1)
  1. IMPLANON [Suspect]
     Indication: CONTRACEPTION
     Dosage: 1 DF, UNK
     Dates: start: 20101110

REACTIONS (3)
  - Abortion induced [Recovered/Resolved]
  - Unintended pregnancy [Recovered/Resolved]
  - Medical device complication [Unknown]
